FAERS Safety Report 14180111 (Version 3)
Quarter: 2017Q4

REPORT INFORMATION
  Report Type: Spontaneous
  Country: US (occurrence: US)
  Receive Date: 20171110
  Receipt Date: 20171208
  Transmission Date: 20180321
  Serious: Yes (Death, Hospitalization, Other)
  Sender: FDA-Public Use
  Company Number: US-INCYTE CORPORATION-2017IN007703

PATIENT

DRUGS (2)
  1. JAKAFI [Suspect]
     Active Substance: RUXOLITINIB
     Indication: MYELOFIBROSIS
     Dosage: 10 MG, BID
     Route: 048
     Dates: start: 20120713
  2. JAKAFI [Suspect]
     Active Substance: RUXOLITINIB
     Dosage: 10 MG, BID
     Route: 048
     Dates: start: 20150702, end: 20171101

REACTIONS (8)
  - Confusional state [Recovering/Resolving]
  - Pyrexia [Unknown]
  - Infection [Unknown]
  - Constipation [Recovering/Resolving]
  - Dehydration [Unknown]
  - Death [Fatal]
  - Haemoglobin decreased [Recovering/Resolving]
  - Lumbar spinal stenosis [Unknown]

NARRATIVE: CASE EVENT DATE: 201711
